FAERS Safety Report 24690884 (Version 3)
Quarter: 2025Q4

REPORT INFORMATION
  Report Type: Spontaneous
  Country: US (occurrence: US)
  Receive Date: 20241203
  Receipt Date: 20251209
  Transmission Date: 20260117
  Serious: No
  Sender: NOVEN
  Company Number: US-NOVEN PHARMACEUTICALS, INC.-2024-NOV-US001264

PATIENT
  Age: 57 Year
  Weight: 63.5 kg

DRUGS (1)
  1. ESTRADIOL [Suspect]
     Active Substance: ESTRADIOL
     Indication: Menopausal symptoms
     Dosage: 0.05 MG, TWICE WEEKLY
     Route: 062
     Dates: start: 202311

REACTIONS (2)
  - Insomnia [Not Recovered/Not Resolved]
  - Blood oestrogen decreased [Unknown]
